FAERS Safety Report 9187846 (Version 1)
Quarter: 2013Q1

REPORT INFORMATION
  Report Type: Spontaneous
  Country: US (occurrence: US)
  Receive Date: 20130325
  Receipt Date: 20130325
  Transmission Date: 20140127
  Serious: No
  Sender: FDA-Public Use
  Company Number: US-TEVA-393767USA

PATIENT
  Age: 76 Year
  Sex: Male
  Weight: 83.99 kg

DRUGS (3)
  1. AZILECT [Suspect]
     Indication: PARKINSON^S DISEASE
     Dosage: 1 MILLIGRAM DAILY;
     Route: 048
     Dates: start: 20130309
  2. CARBIDOPA W/LEVODOPA [Concomitant]
     Indication: PARKINSON^S DISEASE
     Dosage: 25/100 MG
     Route: 048
  3. DIOVAN [Concomitant]
     Dosage: 80 MILLIGRAM DAILY;
     Route: 048

REACTIONS (1)
  - Urinary incontinence [Not Recovered/Not Resolved]
